FAERS Safety Report 17085600 (Version 1)
Quarter: 2019Q4

REPORT INFORMATION
  Report Type: Spontaneous
  Country: PT (occurrence: PT)
  Receive Date: 20191128
  Receipt Date: 20191128
  Transmission Date: 20200122
  Serious: Yes (Life-Threatening, Hospitalization)
  Sender: FDA-Public Use
  Company Number: PT-ACCORD-162311

PATIENT
  Age: 60 Year
  Sex: Female
  Weight: 99 kg

DRUGS (4)
  1. NEBILET [Concomitant]
     Active Substance: NEBIVOLOL
     Route: 048
  2. PRITOR PLUS [Concomitant]
     Active Substance: TELMISARTAN
  3. CAPECITABINE. [Suspect]
     Active Substance: CAPECITABINE
     Indication: RECTAL CANCER
     Dosage: NEOPLASM OF THE RECTUM - INVASIVE CARCINOMA T3N1, 1500 MG 2 X / DAY (3000 MG DAY)
     Route: 048
     Dates: start: 20191020, end: 20191028
  4. SERTRALINE [Concomitant]
     Active Substance: SERTRALINE HYDROCHLORIDE

REACTIONS (1)
  - Prinzmetal angina [Recovered/Resolved]

NARRATIVE: CASE EVENT DATE: 20191028
